FAERS Safety Report 23250331 (Version 1)
Quarter: 2023Q4

REPORT INFORMATION
  Report Type: Other
  Country: SE (occurrence: None)
  Receive Date: 20231201
  Receipt Date: 20231201
  Transmission Date: 20240109
  Serious: Yes (Death, Other)
  Sender: FDA-Public Use
  Company Number: SE-ROCHE-3464913

PATIENT

DRUGS (2)
  1. RITUXIMAB [Suspect]
     Active Substance: RITUXIMAB
     Indication: Chronic lymphocytic leukaemia
     Route: 065
  2. IDELALISIB [Suspect]
     Active Substance: IDELALISIB
     Indication: Chronic lymphocytic leukaemia
     Route: 048

REACTIONS (21)
  - Colitis [Fatal]
  - Septic shock [Fatal]
  - Myocardial infarction [Fatal]
  - Hepatic cirrhosis [Fatal]
  - Haemophagocytic lymphohistiocytosis [Fatal]
  - Gastrointestinal haemorrhage [Unknown]
  - Febrile neutropenia [Unknown]
  - Pneumonia [Unknown]
  - Sepsis [Unknown]
  - Systemic mycosis [Unknown]
  - Pneumocystis jirovecii pneumonia [Unknown]
  - Thrombocytopenia [Unknown]
  - Neutropenia [Unknown]
  - Rash [Unknown]
  - Diarrhoea [Unknown]
  - Hypertransaminasaemia [Unknown]
  - Pneumonitis [Unknown]
  - Hepatic failure [Unknown]
  - Cardiac failure [Unknown]
  - Infection [Unknown]
  - Mucosal inflammation [Unknown]
